FAERS Safety Report 10050888 (Version 1)
Quarter: 2014Q1

REPORT INFORMATION
  Report Type: Spontaneous
  Country: US (occurrence: None)
  Receive Date: 20140328
  Receipt Date: 20140328
  Transmission Date: 20141002
  Serious: Yes (Death)
  Sender: FDA-Public Use
  Company Number: 2014P1002470

PATIENT
  Sex: 0

DRUGS (9)
  1. PREDNISONE [Suspect]
     Indication: PLASMA CELL MYELOMA
  2. LENALIDOMIDE [Suspect]
     Indication: PLASMA CELL MYELOMA
  3. ERYTHROPOIETIN [Suspect]
     Indication: ANAEMIA
  4. DOXORUBICIN [Concomitant]
  5. VINCRISTINE [Concomitant]
  6. DEXAMETHASONE [Concomitant]
  7. ASPIRIN [Concomitant]
  8. AMOXICILLIN [Concomitant]
  9. ACYCLOVIR [Concomitant]

REACTIONS (3)
  - Cardiac arrest [None]
  - Angina unstable [None]
  - Myocardial infarction [None]
